FAERS Safety Report 12001586 (Version 1)
Quarter: 2016Q1

REPORT INFORMATION
  Report Type: Spontaneous
  Country: US (occurrence: US)
  Receive Date: 20160204
  Receipt Date: 20160204
  Transmission Date: 20160526
  Serious: No
  Sender: FDA-Public Use
  Company Number: US-PERRIGO-14US012474

PATIENT
  Age: 59 Year
  Sex: Female

DRUGS (3)
  1. IBUPROFEN. [Suspect]
     Active Substance: IBUPROFEN
     Indication: PAIN IN EXTREMITY
     Dosage: 800 UNK, UNK
     Route: 048
     Dates: start: 20141205, end: 20141205
  2. IBUPROFEN. [Suspect]
     Active Substance: IBUPROFEN
     Indication: BACK PAIN
     Dosage: 1200 MG, SINGLE
     Route: 048
     Dates: start: 2014, end: 2014
  3. IBUPROFEN. [Suspect]
     Active Substance: IBUPROFEN
     Indication: PAIN

REACTIONS (6)
  - Diarrhoea [Recovered/Resolved]
  - Incorrect dose administered [Recovered/Resolved]
  - Dizziness [Recovered/Resolved]
  - Exposure to unspecified agent [Recovered/Resolved]
  - Vomiting [Recovered/Resolved]
  - Nausea [Recovered/Resolved]

NARRATIVE: CASE EVENT DATE: 2014
